FAERS Safety Report 9024369 (Version 1)
Quarter: 2013Q1

REPORT INFORMATION
  Report Type: Report from Study
  Country: JP (occurrence: JP)
  Receive Date: 20130121
  Receipt Date: 20130121
  Transmission Date: 20140127
  Serious: Yes (Other)
  Sender: FDA-Public Use
  Company Number: JP-009507513-2012SP006361

PATIENT
  Age: 67 Year
  Sex: Male
  Weight: 57 kg

DRUGS (9)
  1. REBETOL [Suspect]
     Indication: CHRONIC HEPATITIS C
     Dosage: 200MG IN THE MORNING AND 400MG IN THE EVENING
     Route: 048
     Dates: start: 20100204, end: 20100304
  2. REBETOL [Suspect]
     Dosage: 200MG IN THE MORNING AND 400MG IN THE EVENING
     Route: 048
     Dates: start: 20100306, end: 20110105
  3. FERON [Suspect]
     Indication: CHRONIC HEPATITIS C
     Dosage: 6(MILLION- BILLION UNIT),  QD
     Route: 042
     Dates: start: 20100204, end: 20100304
  4. FERON [Suspect]
     Dosage: 6(MILLION- BILLION UNIT), TIW
     Route: 042
     Dates: start: 20100306, end: 20110105
  5. VONAFEC [Concomitant]
     Indication: PYREXIA
     Dosage: 50 MG, TIW
     Route: 054
     Dates: start: 20100204, end: 20100303
  6. VONAFEC [Concomitant]
     Dosage: 50 MG TIW
     Route: 054
     Dates: start: 20100407, end: 20100710
  7. VONAFEC [Concomitant]
     Dosage: 50 MG, TIW
     Route: 054
     Dates: start: 20100712, end: 20101201
  8. VOLTAREN [Concomitant]
     Indication: PYREXIA
     Dosage: 50 MG, TIW
     Route: 054
     Dates: start: 20100304, end: 20100405
  9. ETIZOLAM [Concomitant]
     Indication: ANXIETY DISORDER
     Dosage: 1 MG, QD, THE DIVIDED DOSE FREQUENCY IS UNCERTAIN.
     Route: 048

REACTIONS (2)
  - Neutrophil count decreased [Recovered/Resolved]
  - Pyrexia [Recovered/Resolved]
